FAERS Safety Report 4648696-3 (Version None)
Quarter: 2005Q2

REPORT INFORMATION
  Report Type: 
  Country: None (occurrence: None)
  Receive Date: 20050427
  Receipt Date: 20050331
  Transmission Date: 20051028
  Serious: Yes (Hospitalization)
  Sender: FDA-Public Use
  Company Number: PAR_0006_2005

PATIENT
  Age: 79 Year
  Sex: Male

DRUGS (7)
  1. VASOLAN [Suspect]
     Dosage: 80 MG DAY PO
     Route: 048
     Dates: end: 20050328
  2. CLEAMINE [Concomitant]
  3. LOXOPROFEN [Concomitant]
  4. NIFEDIPINE [Concomitant]
  5. TELMISARTAN [Concomitant]
  6. LASIX [Concomitant]
  7. FLUNITRAZEPAM [Concomitant]

REACTIONS (3)
  - BLOOD POTASSIUM INCREASED [None]
  - BRADYCARDIA [None]
  - MALAISE [None]
